FAERS Safety Report 13772549 (Version 2)
Quarter: 2017Q3

REPORT INFORMATION
  Report Type: Report from Study
  Country: US (occurrence: US)
  Receive Date: 20170720
  Receipt Date: 20170725
  Transmission Date: 20171127
  Serious: Yes (Other)
  Sender: FDA-Public Use
  Company Number: US-PFIZER INC-2017312004

PATIENT
  Age: 55 Year
  Sex: Female

DRUGS (4)
  1. HYDROXYZINE PAMOATE. [Suspect]
     Active Substance: HYDROXYZINE PAMOATE
     Dosage: UNK
  2. TRAMADOL. [Suspect]
     Active Substance: TRAMADOL
     Dosage: UNK
  3. MELOXICAM. [Suspect]
     Active Substance: MELOXICAM
     Dosage: UNK
  4. TOPIRAMATE. [Suspect]
     Active Substance: TOPIRAMATE
     Dosage: UNK

REACTIONS (3)
  - Lymphomatoid papulosis [Recovered/Resolved]
  - Rash papular [Recovered/Resolved]
  - Nodular rash [Recovered/Resolved]
